FAERS Safety Report 6466896-7 (Version None)
Quarter: 2009Q4

REPORT INFORMATION
  Report Type: 
  Country: None (occurrence: None)
  Receive Date: 20091202
  Receipt Date: 20091202
  Transmission Date: 20100525
  Serious: Yes (Hospitalization)
  Sender: FDA-Public Use
  Company Number: B0608585A

PATIENT
  Age: 35 Year
  Sex: Female
  Weight: 114.9 kg

DRUGS (6)
  1. ORLISTAT [Suspect]
     Dosage: 360MG PER DAY
     Route: 048
     Dates: start: 20060925, end: 20061020
  2. ALBUTEROL SULFATE AUTOHALER [Concomitant]
     Indication: ASTHMA
     Route: 055
  3. ALBUTEROL [Concomitant]
     Indication: ASTHMA
     Route: 055
  4. BECLOMETHASONE DIPROPIONATE [Concomitant]
     Indication: ASTHMA
     Route: 055
  5. NOVOMIX [Concomitant]
     Dosage: 136IU PER DAY
     Route: 058
  6. DEPO-PROVERA [Concomitant]
     Indication: CONTRACEPTION
     Route: 030

REACTIONS (5)
  - ASTHENOPIA [None]
  - DIARRHOEA [None]
  - HYPOAESTHESIA FACIAL [None]
  - HYPOTENSION [None]
  - RENAL FAILURE [None]
